FAERS Safety Report 6834807-8 (Version None)
Quarter: 2010Q3

REPORT INFORMATION
  Report Type: 
  Country: None (occurrence: None)
  Receive Date: 20100712
  Receipt Date: 20070412
  Transmission Date: 20110219
  Serious: No
  Sender: FDA-Public Use
  Company Number: US-PFIZER INC-2007031048

PATIENT
  Sex: Male
  Weight: 99.79 kg

DRUGS (5)
  1. CHANTIX [Suspect]
     Indication: SMOKING CESSATION THERAPY
     Route: 048
     Dates: start: 20070402, end: 20070405
  2. METHADONE HCL [Concomitant]
  3. IBUPROFEN [Concomitant]
  4. PENICILLIN NOS [Concomitant]
  5. AMOXICILLIN [Concomitant]

REACTIONS (7)
  - ASTHENIA [None]
  - BACK PAIN [None]
  - FATIGUE [None]
  - NAUSEA [None]
  - RENAL PAIN [None]
  - RETCHING [None]
  - VOMITING [None]
